FAERS Safety Report 8560210-9 (Version None)
Quarter: 2012Q3

REPORT INFORMATION
  Report Type: 
  Country: None (occurrence: None)
  Receive Date: 20120802
  Receipt Date: 20120723
  Transmission Date: 20120928
  Serious: Yes (Other)
  Sender: FDA-Public Use
  Company Number: JP-PFIZER INC-2012185767

PATIENT

DRUGS (1)
  1. AMIODARONE HCL [Suspect]
     Dosage: UNK
     Route: 048

REACTIONS (2)
  - HYPOTHYROIDISM [None]
  - BRAIN NATRIURETIC PEPTIDE INCREASED [None]
